FAERS Safety Report 6991435-1 (Version None)
Quarter: 2010Q3

REPORT INFORMATION
  Report Type: 
  Country: None (occurrence: None)
  Receive Date: 20100916
  Receipt Date: 20090826
  Transmission Date: 20110219
  Serious: No
  Sender: FDA-Public Use
  Company Number: US-WYE-H10743709

PATIENT
  Sex: Female
  Weight: 78.09 kg

DRUGS (9)
  1. PRISTIQ [Suspect]
     Indication: DEPRESSION
     Route: 048
     Dates: start: 20090813, end: 20090814
  2. PRISTIQ [Suspect]
     Route: 048
     Dates: start: 20090820, end: 20090822
  3. PRISTIQ [Suspect]
     Route: 048
     Dates: start: 20090823
  4. LAMICTAL [Concomitant]
  5. ERGOCALCIFEROL [Concomitant]
  6. BONIVA [Concomitant]
  7. SIMVASTATIN [Concomitant]
  8. RAMIPRIL [Concomitant]
  9. ZEGERID [Concomitant]

REACTIONS (6)
  - CLUMSINESS [None]
  - CONSTIPATION [None]
  - DECREASED APPETITE [None]
  - FEELING ABNORMAL [None]
  - NAUSEA [None]
  - THERAPEUTIC RESPONSE UNEXPECTED [None]
